FAERS Safety Report 9293037 (Version 1)
Quarter: 2013Q2

REPORT INFORMATION
  Report Type: Spontaneous
  Country: US (occurrence: None)
  Receive Date: 20130515
  Receipt Date: 20130515
  Transmission Date: 20140414
  Serious: No
  Sender: FDA-Public Use
  Company Number: None

PATIENT
  Age: 60 Year
  Sex: Female

DRUGS (2)
  1. METHOTREXATE [Suspect]
     Indication: RHEUMATOID ARTHRITIS
     Dosage: ^ONLY TOOK BRIEFLY^
  2. ORENCIA [Suspect]
     Dosage: ^TOOK FOR 13 MONTHS^

REACTIONS (1)
  - Hospitalisation [None]
